FAERS Safety Report 11040304 (Version 1)
Quarter: 2015Q2

REPORT INFORMATION
  Report Type: Spontaneous
  Country: US (occurrence: US)
  Receive Date: 20150416
  Receipt Date: 20150416
  Transmission Date: 20150821
  Serious: Yes (Other)
  Sender: FDA-Public Use
  Company Number: US-ELI_LILLY_AND_COMPANY-US201504003584

PATIENT
  Sex: Female

DRUGS (5)
  1. ALBUTEROL                          /00139501/ [Concomitant]
     Active Substance: ALBUTEROL
  2. PROZAC [Suspect]
     Active Substance: FLUOXETINE HYDROCHLORIDE
     Indication: DEPRESSION
     Dosage: 40 MG, QD
     Route: 065
  3. RISPERDAL [Concomitant]
     Active Substance: RISPERIDONE
  4. ZYPREXA [Concomitant]
     Active Substance: OLANZAPINE
  5. STELAZINE [Concomitant]
     Active Substance: TRIFLUOPERAZINE HYDROCHLORIDE

REACTIONS (2)
  - Exposure during pregnancy [Unknown]
  - Breech presentation [Unknown]
